FAERS Safety Report 10222251 (Version 1)
Quarter: 2014Q2

REPORT INFORMATION
  Report Type: Spontaneous
  Country: FR (occurrence: FR)
  Receive Date: 20140606
  Receipt Date: 20140606
  Transmission Date: 20141212
  Serious: Yes (Hospitalization)
  Sender: FDA-Public Use
  Company Number: FR-GLAXOSMITHKLINE-B0998407A

PATIENT
  Age: 43 Year
  Sex: Male

DRUGS (15)
  1. ZOPHREN [Suspect]
     Indication: PREMEDICATION
     Route: 065
     Dates: start: 20140401, end: 20140401
  2. EMEND [Suspect]
     Indication: PREMEDICATION
     Route: 048
     Dates: start: 20140401, end: 20140401
  3. PRIMPERAN [Suspect]
     Indication: PREMEDICATION
     Route: 048
     Dates: start: 20140401, end: 20140401
  4. TRANXENE [Suspect]
     Indication: PREMEDICATION
     Route: 065
     Dates: start: 20140401, end: 20140401
  5. IMODIUM [Concomitant]
     Route: 048
  6. PARACETAMOL [Concomitant]
     Route: 065
  7. SMECTA [Concomitant]
     Route: 048
  8. OXYNORM [Concomitant]
     Dosage: 10MG UNKNOWN
     Route: 048
  9. LIDOCAIN [Concomitant]
     Route: 061
  10. XANAX [Concomitant]
     Dosage: .5MG PER DAY
     Route: 048
  11. STILNOX [Concomitant]
     Route: 048
  12. OXALIPLATIN [Concomitant]
     Route: 065
     Dates: start: 201403
  13. 5-FU [Concomitant]
     Route: 065
     Dates: start: 201403
  14. ACID FOLINIC [Concomitant]
     Route: 065
     Dates: start: 201403
  15. ERBITUX [Concomitant]
     Route: 065
     Dates: start: 201403

REACTIONS (6)
  - Erythema [Recovered/Resolved]
  - Pruritus [Recovered/Resolved]
  - Abdominal pain [Recovered/Resolved]
  - Nausea [Recovered/Resolved]
  - Vomiting [Recovered/Resolved]
  - Hypersensitivity [Recovered/Resolved]
